FAERS Safety Report 5762653-5 (Version None)
Quarter: 2008Q2

REPORT INFORMATION
  Report Type: 
  Country: None (occurrence: None)
  Receive Date: 20080609
  Receipt Date: 20080530
  Transmission Date: 20081010
  Serious: Yes (Other)
  Sender: FDA-Public Use
  Company Number: HU-AVENTIS-200813387GDDC

PATIENT
  Age: 34 Year
  Sex: Female

DRUGS (1)
  1. LEFLUNOMIDE [Suspect]
     Indication: RHEUMATOID ARTHRITIS
     Dosage: DOSE: UNK
     Route: 048
     Dates: start: 20020101, end: 20050101

REACTIONS (4)
  - BACK PAIN [None]
  - COUGH [None]
  - PYREXIA [None]
  - RHEUMATOID LUNG [None]
